FAERS Safety Report 24659097 (Version 2)
Quarter: 2024Q4

REPORT INFORMATION
  Report Type: Spontaneous
  Country: BE (occurrence: BE)
  Receive Date: 20241125
  Receipt Date: 20241205
  Transmission Date: 20250114
  Serious: Yes (Death)
  Sender: TEVA
  Company Number: BE-TEVA-VS-3267444

PATIENT
  Age: 62 Year
  Sex: Female

DRUGS (9)
  1. CISPLATIN [Suspect]
     Active Substance: CISPLATIN
     Indication: Neuroendocrine carcinoma
     Dosage: FOUR CYCLES
     Route: 065
  2. FLUOROURACIL [Suspect]
     Active Substance: FLUOROURACIL
     Indication: Neuroendocrine carcinoma
     Route: 065
     Dates: start: 202302
  3. ETOPOSIDE [Suspect]
     Active Substance: ETOPOSIDE
     Indication: Neuroendocrine carcinoma
     Route: 065
     Dates: start: 202111, end: 202208
  4. ETOPOSIDE [Suspect]
     Active Substance: ETOPOSIDE
     Indication: Neuroendocrine carcinoma
     Dosage: FOUR CYCLES
     Route: 065
  5. CARBOPLATIN [Suspect]
     Active Substance: CARBOPLATIN
     Indication: Neuroendocrine carcinoma
     Route: 065
     Dates: start: 202111, end: 202208
  6. IRINOTECAN [Suspect]
     Active Substance: IRINOTECAN
     Indication: Neuroendocrine carcinoma
     Dosage: EVERY THREE WEEKS
     Route: 065
     Dates: start: 202302
  7. TEMOZOLOMIDE [Suspect]
     Active Substance: TEMOZOLOMIDE
     Indication: Neuroendocrine carcinoma
     Route: 065
     Dates: start: 202209
  8. CAPECITABINE [Suspect]
     Active Substance: CAPECITABINE
     Indication: Neuroendocrine carcinoma
     Route: 065
     Dates: start: 202209
  9. EVEROLIMUS [Suspect]
     Active Substance: EVEROLIMUS
     Indication: Neuroendocrine carcinoma
     Route: 065
     Dates: start: 202211

REACTIONS (1)
  - Drug ineffective [Fatal]
